FAERS Safety Report 10050116 (Version 1)
Quarter: 2014Q1

REPORT INFORMATION
  Report Type: Spontaneous
  Country: US (occurrence: None)
  Receive Date: 20140328
  Receipt Date: 20140328
  Transmission Date: 20141002
  Serious: Yes (Death, Other)
  Sender: FDA-Public Use
  Company Number: AUR-APL-2014-03846

PATIENT
  Age: 33 Year
  Sex: Female

DRUGS (7)
  1. METFORMIN [Suspect]
     Indication: PRODUCT USED FOR UNKNOWN INDICATION
     Dosage: (500 MG), UNKNOWN
  2. ALPRAZOLAM [Suspect]
     Indication: PRODUCT USED FOR UNKNOWN INDICATION
  3. HYDROXYCHLOROQUINE [Suspect]
     Indication: PRODUCT USED FOR UNKNOWN INDICATION
     Route: 048
  4. ACETAMINOPHEN/DIPHENHYDRAMINE (DOZOL) (PARACETAMOL, DIPHENHYDRAMINE HYDROCHLORIDE) [Suspect]
     Indication: PRODUCT USED FOR UNKNOWN INDICATION
  5. HYDROXYZINE [Suspect]
     Indication: PRODUCT USED FOR UNKNOWN INDICATION
  6. COCAINE [Suspect]
     Indication: PRODUCT USED FOR UNKNOWN INDICATION
  7. PREGABALIN [Suspect]
     Indication: PRODUCT USED FOR UNKNOWN INDICATION
     Dosage: (150 MG), UNKNOWN

REACTIONS (14)
  - Completed suicide [None]
  - Toxicity to various agents [None]
  - Respiratory depression [None]
  - Bradycardia [None]
  - Hypotension [None]
  - No therapeutic response [None]
  - Pupil fixed [None]
  - Blood potassium decreased [None]
  - Drug screen positive [None]
  - Exposure via ingestion [None]
  - Aspiration [None]
  - Bundle branch block [None]
  - Haemodialysis [None]
  - Incorrect dose administered [None]
